FAERS Safety Report 19535468 (Version 1)
Quarter: 2021Q3

REPORT INFORMATION
  Report Type: Report from Study
  Country: US (occurrence: US)
  Receive Date: 20210713
  Receipt Date: 20210713
  Transmission Date: 20211014
  Serious: Yes (Hospitalization)
  Sender: FDA-Public Use
  Company Number: US-HORIZON THERAPEUTICS-HZN-2021-004305

PATIENT

DRUGS (1)
  1. RAVICTI [Suspect]
     Active Substance: GLYCEROL PHENYLBUTYRATE
     Indication: HYPERORNITHINAEMIA-HYPERAMMONAEMIA-HOMOCITRULLINURIA SYNDROME
     Dosage: UNK
     Route: 065
     Dates: start: 20210621

REACTIONS (1)
  - Temperature regulation disorder [Unknown]
